FAERS Safety Report 8158177-0 (Version None)
Quarter: 2012Q1

REPORT INFORMATION
  Report Type: 
  Country: None (occurrence: None)
  Receive Date: 20120222
  Receipt Date: 20120214
  Transmission Date: 20120608
  Serious: Yes (Other)
  Sender: FDA-Public Use
  Company Number: US-ASTRAZENECA-2012SE10339

PATIENT
  Age: 51 Year
  Sex: Male
  Weight: 81.6 kg

DRUGS (14)
  1. MULTIVITAMIN AND MINERAL [Concomitant]
     Dosage: DAILY
  2. ASPIRIN [Concomitant]
  3. ATRIPLA [Concomitant]
     Dosage: 600-200-300 MG TABLET ON EMPTY STOMACH AT NIGHT
  4. PLAVIX [Concomitant]
  5. PROAIR HFA [Concomitant]
  6. LISINOPRIL [Concomitant]
  7. CRESTOR [Suspect]
     Route: 048
  8. SEROQUEL [Concomitant]
  9. NIASPAN [Concomitant]
  10. VIAGRA [Concomitant]
  11. METOPROLOL TARTRATE [Concomitant]
  12. LAMICTAL [Concomitant]
  13. PROZAC [Concomitant]
  14. EXTRA STRENGTH TYLENOL [Concomitant]

REACTIONS (12)
  - MYOCARDIAL INFARCTION [None]
  - ARTERIOSCLEROSIS CORONARY ARTERY [None]
  - ESSENTIAL HYPERTENSION [None]
  - CORONARY ARTERY DISEASE [None]
  - IMPAIRED FASTING GLUCOSE [None]
  - LOW DENSITY LIPOPROTEIN INCREASED [None]
  - BIPOLAR DISORDER [None]
  - ANXIETY [None]
  - DEPRESSION [None]
  - HIV INFECTION [None]
  - HYPERLIPIDAEMIA [None]
  - DRUG DOSE OMISSION [None]
